FAERS Safety Report 8093602-5 (Version None)
Quarter: 2012Q1

REPORT INFORMATION
  Report Type: 
  Country: None (occurrence: None)
  Receive Date: 20120129
  Receipt Date: 20110922
  Transmission Date: 20120608
  Serious: No
  Sender: FDA-Public Use
  Company Number: US-ABBOTT-11P-163-0856918-00

PATIENT
  Sex: Female
  Weight: 68.1 kg

DRUGS (3)
  1. ARAVA [Concomitant]
     Indication: RHEUMATOID ARTHRITIS
  2. CELEBREX [Concomitant]
     Indication: RHEUMATOID ARTHRITIS
  3. HUMIRA [Suspect]
     Indication: RHEUMATOID ARTHRITIS
     Dates: start: 20080101, end: 20090101

REACTIONS (3)
  - BONE DISORDER [None]
  - DECREASED ACTIVITY [None]
  - PAIN [None]
